FAERS Safety Report 8260401-0 (Version None)
Quarter: 2012Q2

REPORT INFORMATION
  Report Type: 
  Country: None (occurrence: None)
  Receive Date: 20120404
  Receipt Date: 20120321
  Transmission Date: 20120825
  Serious: Yes (Other)
  Sender: FDA-Public Use
  Company Number: CHPA2012US005544

PATIENT
  Sex: Female

DRUGS (2)
  1. EXCEDRIN EXTRA STRENGTH TABLETS [Suspect]
     Indication: HEADACHE
     Dosage: 3 DF, QD
     Route: 048
  2. EXCEDRIN TENSION HEADACHE CAPLETS [Suspect]
     Indication: HEADACHE
     Dosage: 3 DF, QD
     Route: 048

REACTIONS (5)
  - INCORRECT DRUG ADMINISTRATION DURATION [None]
  - INCORRECT DOSE ADMINISTERED [None]
  - INTERVERTEBRAL DISC PROTRUSION [None]
  - GASTRIC CANCER [None]
  - HYPERTENSION [None]
